FAERS Safety Report 23692627 (Version 1)
Quarter: 2024Q1

REPORT INFORMATION
  Report Type: Spontaneous
  Country: US (occurrence: None)
  Receive Date: 20240330
  Receipt Date: 20240330
  Transmission Date: 20240409
  Serious: No
  Sender: FDA-Public Use
  Company Number: None

PATIENT
  Sex: Male
  Weight: 127 kg

DRUGS (1)
  1. RADIUM RA-223 DICHLORIDE [Suspect]
     Active Substance: RADIUM RA-223 DICHLORIDE

REACTIONS (7)
  - Back pain [None]
  - Asthenia [None]
  - Haemoglobin decreased [None]
  - Red blood cell transfusion [None]
  - Transfusion reaction [None]
  - Oedema peripheral [None]
  - Atrial fibrillation [None]

NARRATIVE: CASE EVENT DATE: 20240324
